FAERS Safety Report 12169462 (Version 1)
Quarter: 2016Q1

REPORT INFORMATION
  Report Type: Spontaneous
  Country: FR (occurrence: FR)
  Receive Date: 20160310
  Receipt Date: 20160310
  Transmission Date: 20160526
  Serious: Yes (Death, Congenital Anomaly)
  Sender: FDA-Public Use
  Company Number: FR-PFIZER INC-2016147263

PATIENT
  Sex: Male
  Weight: .35 kg

DRUGS (9)
  1. PLAQUENIL [Suspect]
     Active Substance: HYDROXYCHLOROQUINE SULFATE
     Indication: SYSTEMIC LUPUS ERYTHEMATOSUS
     Dosage: 100 MG, 2X/DAY
     Route: 064
     Dates: start: 20150809, end: 20151215
  2. ASPEGIC [Suspect]
     Active Substance: ASPIRIN DL-LYSINE
     Indication: SYSTEMIC LUPUS ERYTHEMATOSUS
     Dosage: 100 MG, 1X/DAY
     Route: 064
     Dates: start: 20150809, end: 20151215
  3. CACIT /00944201/ [Suspect]
     Active Substance: CALCIUM CARBONATE\CHOLECALCIFEROL
     Indication: OSTEOPOROSIS PROPHYLAXIS
     Dosage: 1 DF, 1X/DAY
     Route: 064
     Dates: start: 20150809, end: 20151215
  4. LOVENOX [Concomitant]
     Active Substance: ENOXAPARIN SODIUM
     Dosage: ^0.6^ TWICE DAILY
     Route: 064
  5. XANAX [Suspect]
     Active Substance: ALPRAZOLAM
     Indication: ANXIETY DISORDER
     Dosage: 0.75 MG, 1X/DAY AT BEDTIME
     Route: 064
     Dates: start: 20150809, end: 20151215
  6. CORTANCYL [Suspect]
     Active Substance: PREDNISONE
     Indication: SYSTEMIC LUPUS ERYTHEMATOSUS
     Dosage: 10 MG, 1X/DAY
     Route: 064
     Dates: start: 20150809, end: 20151215
  7. COUMADINE [Suspect]
     Active Substance: WARFARIN SODIUM
     Indication: MITRAL VALVE REPLACEMENT
     Dosage: UNK
     Route: 064
     Dates: start: 20150809, end: 20151005
  8. MOPRAL /00661201/ [Suspect]
     Active Substance: OMEPRAZOLE SODIUM
     Indication: GASTROOESOPHAGEAL REFLUX DISEASE
     Dosage: 1 DF, 2X/DAY
     Route: 064
     Dates: start: 20150809, end: 20151215
  9. CLAREAL [Concomitant]
     Indication: CONTRACEPTION
     Dosage: 0.075 MG, UNK
     Route: 064

REACTIONS (3)
  - Congenital central nervous system anomaly [Fatal]
  - Dandy-Walker syndrome [Fatal]
  - Maternal exposure during pregnancy [Fatal]

NARRATIVE: CASE EVENT DATE: 20151201
